FAERS Safety Report 6541192-8 (Version None)
Quarter: 2010Q1

REPORT INFORMATION
  Report Type: 
  Country: None (occurrence: None)
  Receive Date: 20100118
  Receipt Date: 20100113
  Transmission Date: 20100710
  Serious: Yes (Life-Threatening, Hospitalization)
  Sender: FDA-Public Use
  Company Number: B0625183A

PATIENT
  Age: 11 Year
  Sex: Male
  Weight: 35.9 kg

DRUGS (8)
  1. THIOGUANINE [Suspect]
     Route: 048
     Dates: start: 20050105, end: 20050112
  2. CYTARABINE [Concomitant]
     Route: 042
     Dates: start: 20040825
  3. METHOTREXATE [Concomitant]
     Route: 037
     Dates: start: 20040609
  4. DOXORUBICIN HCL [Concomitant]
     Route: 042
     Dates: start: 20041201
  5. VINCRISTINE [Concomitant]
     Route: 042
     Dates: start: 20040603
  6. DEXAMETHASONE [Concomitant]
     Dosage: 12MG PER DAY
     Route: 048
     Dates: start: 20040603
  7. SEPTRIN [Concomitant]
     Dosage: 960MG PER DAY
     Route: 048
     Dates: start: 20040603
  8. CYCLOPHOSPHAMIDE [Concomitant]
     Dosage: 1300MG PER DAY
     Route: 042
     Dates: start: 20040825

REACTIONS (4)
  - ABDOMINAL PAIN [None]
  - ASCITES [None]
  - HEPATOMEGALY [None]
  - PLATELET DISORDER [None]
